FAERS Safety Report 5391655-6 (Version None)
Quarter: 2007Q3

REPORT INFORMATION
  Report Type: 
  Country: None (occurrence: None)
  Receive Date: 20070719
  Receipt Date: 20070709
  Transmission Date: 20080115
  Serious: Yes (Hospitalization)
  Sender: FDA-Public Use
  Company Number: US-SHR-US-2007-011252

PATIENT
  Age: 57 Year
  Sex: Female
  Weight: 58.957 kg

DRUGS (6)
  1. BETASERON [Suspect]
     Indication: RELAPSING-REMITTING MULTIPLE SCLEROSIS
     Dosage: 8 MIU, EVERY 2D
     Route: 058
     Dates: start: 20001210
  2. BETASERON [Suspect]
     Dosage: 8 MIU, EVERY 2D
     Route: 058
     Dates: start: 20070409
  3. SERTRALINE [Concomitant]
     Dosage: 50 MG, 2X/DAY
  4. ARICEPT [Concomitant]
     Dosage: 1 TAB(S), 1X/DAY IN THE MORNING
     Route: 048
  5. DIOVAN [Concomitant]
     Dosage: 1 TAB(S), 160MG/12.5MG
     Route: 048
  6. ATENOLOL [Concomitant]
     Dosage: 25 MG, 2X/DAY

REACTIONS (6)
  - BLOOD PRESSURE FLUCTUATION [None]
  - CARDIAC FAILURE [None]
  - DYSPNOEA [None]
  - KNEE ARTHROPLASTY [None]
  - LOSS OF CONSCIOUSNESS [None]
  - POST PROCEDURAL PNEUMONIA [None]
